FAERS Safety Report 6106015-X (Version None)
Quarter: 2009Q1

REPORT INFORMATION
  Report Type: 
  Country: None (occurrence: None)
  Receive Date: 20090306
  Receipt Date: 20090225
  Transmission Date: 20090719
  Serious: Yes (Hospitalization)
  Sender: FDA-Public Use
  Company Number: US-JNJFOC-20090106792

PATIENT
  Sex: Male
  Weight: 33 kg

DRUGS (4)
  1. INFLIXIMAB [Suspect]
     Route: 042
  2. INFLIXIMAB [Suspect]
     Indication: INFLAMMATORY BOWEL DISEASE
     Route: 042
  3. METHOTREXATE [Concomitant]
     Indication: INFLAMMATORY BOWEL DISEASE
  4. HUMIRA [Concomitant]

REACTIONS (1)
  - CROHN'S DISEASE [None]
